FAERS Safety Report 23440156 (Version 2)
Quarter: 2024Q1

REPORT INFORMATION
  Report Type: Spontaneous
  Country: US (occurrence: US)
  Receive Date: 20240124
  Receipt Date: 20240206
  Transmission Date: 20240410
  Serious: Yes (Hospitalization, Other)
  Sender: FDA-Public Use
  Company Number: US-009507513-2401USA013310

PATIENT
  Age: 73 Year
  Sex: Female
  Weight: 45 kg

DRUGS (2)
  1. KEYTRUDA [Suspect]
     Active Substance: PEMBROLIZUMAB
     Indication: Renal cancer
     Dosage: UNK
     Route: 042
     Dates: start: 20231113
  2. INSULIN NOS [Concomitant]
     Active Substance: INSULIN NOS

REACTIONS (5)
  - Troponin increased [Not Recovered/Not Resolved]
  - Inflammation [Not Recovered/Not Resolved]
  - Immunotoxicity [Not Recovered/Not Resolved]
  - Type 1 diabetes mellitus [Not Recovered/Not Resolved]
  - Malaise [Not Recovered/Not Resolved]

NARRATIVE: CASE EVENT DATE: 20230101
